FAERS Safety Report 9410176 (Version 2)
Quarter: 2013Q3

REPORT INFORMATION
  Report Type: Spontaneous
  Country: AU (occurrence: AU)
  Receive Date: 20130719
  Receipt Date: 20130724
  Transmission Date: 20140515
  Serious: Yes (Death, Other)
  Sender: FDA-Public Use
  Company Number: AU-B.I. PHARMACEUTICALS,INC./RIDGEFIELD-2013-AU-00880AU

PATIENT
  Sex: Female

DRUGS (28)
  1. PRADAXA [Suspect]
     Indication: CEREBROVASCULAR ACCIDENT PROPHYLAXIS
     Dosage: 300 MG
     Dates: start: 20110202
  2. PRADAXA [Suspect]
     Indication: ATRIAL FIBRILLATION
  3. ADALAT OROS [Concomitant]
     Dosage: 20 MG
  4. ALDACTONE [Concomitant]
     Dosage: 25 MG
  5. BISACODYL [Concomitant]
  6. BISOLVON CHESTY SOLUBLE [Concomitant]
     Dosage: 25 RT
  7. CLONIDINE HYDROCHLORIDE [Concomitant]
     Dosage: 50 MCG
  8. COVERSYL [Concomitant]
     Dosage: 2.5 MG
  9. EFEXOR-XR [Concomitant]
     Dosage: 150 MG
  10. ENDEP [Concomitant]
     Dosage: 10 MG
  11. FERRO-GRADUMET [Concomitant]
     Dosage: 325 MG
  12. FORTISIP [Concomitant]
  13. LANOXIN-PG [Concomitant]
     Dosage: 62.5 MCG
  14. LASIX [Concomitant]
     Dosage: 120 MG
  15. LIPIDIL [Concomitant]
     Dosage: 145 MG
  16. LYRICA [Concomitant]
     Dosage: 150 MG
  17. MORPHINE SULFATE [Concomitant]
     Dosage: 5-10MG
  18. MOVICOL [Concomitant]
     Dosage: 13.125G/350.7MG/46.6MG/178.5MG
  19. NOVASONE [Concomitant]
     Dosage: 0.1%W/W LOTION
  20. ORDINE [Concomitant]
     Dosage: 5MG/ML
  21. OXYCONTIN [Concomitant]
     Dosage: 5 MG
  22. OXYNORM [Concomitant]
  23. PANAMAX [Concomitant]
  24. PARIET [Concomitant]
     Dosage: 20 MG
  25. PLAVIX [Concomitant]
     Dosage: 75 MG
  26. SYSTANE [Concomitant]
     Dosage: 0.4%/0.3%
  27. TEMAZE [Concomitant]
     Dosage: 10 MG
  28. VALIUM [Concomitant]

REACTIONS (2)
  - Condition aggravated [Fatal]
  - Pubis fracture [Unknown]
